FAERS Safety Report 15924415 (Version 2)
Quarter: 2019Q1

REPORT INFORMATION
  Report Type: Spontaneous
  Country: US (occurrence: US)
  Receive Date: 20190205
  Receipt Date: 20190219
  Transmission Date: 20190417
  Serious: No
  Sender: FDA-Public Use
  Company Number: US-ALLERGAN-1828120US

PATIENT
  Age: 31 Year
  Sex: Female

DRUGS (4)
  1. BOTOX [Suspect]
     Active Substance: ONABOTULINUMTOXINA
     Indication: MIGRAINE
     Dosage: UNK UNK, SINGLE
     Route: 030
     Dates: start: 20171221, end: 20171221
  2. JUVEDERM [Concomitant]
     Active Substance: HYALURONIC ACID
     Indication: SKIN WRINKLING
  3. JUVEDERM [Concomitant]
     Active Substance: HYALURONIC ACID
     Indication: SKIN WRINKLING
     Dosage: UNK, SINGLE
     Route: 065
     Dates: start: 20171221, end: 20171221
  4. JUVEDERM [Concomitant]
     Active Substance: HYALURONIC ACID
     Indication: SKIN WRINKLING

REACTIONS (3)
  - Therapeutic response decreased [Unknown]
  - Ecchymosis [Not Recovered/Not Resolved]
  - Contusion [Unknown]

NARRATIVE: CASE EVENT DATE: 20171221
